FAERS Safety Report 17567593 (Version 1)
Quarter: 2020Q1

REPORT INFORMATION
  Report Type: Spontaneous
  Country: GB (occurrence: GB)
  Receive Date: 20200320
  Receipt Date: 20200320
  Transmission Date: 20200409
  Serious: Yes (Other)
  Sender: FDA-Public Use
  Company Number: GB-TEVA-2020-GB-1204808

PATIENT
  Age: 32 Year
  Sex: Female
  Weight: 59 kg

DRUGS (17)
  1. HEDRIN [Concomitant]
     Active Substance: DIMETHICONE
     Dosage: USE AS DIRECTED
     Dates: start: 20200214
  2. FOSTAIR [Concomitant]
     Active Substance: BECLOMETHASONE\FORMOTEROL
     Indication: CHRONIC OBSTRUCTIVE PULMONARY DISEASE
     Dosage: PUFFS, 4 DOSAGE FORMS
     Dates: start: 20190508
  3. FLUOXETINE [Suspect]
     Active Substance: FLUOXETINE HYDROCHLORIDE
     Dates: start: 20200211
  4. ZEROCREAM [Concomitant]
     Dosage: APPLY TO WHOLE BODY, 2 DOSAGE FORMS
     Dates: start: 20200211
  5. GLYCEROL [Concomitant]
     Active Substance: GLYCERIN
     Dosage: 1 DOSAGE FORM
     Route: 054
     Dates: start: 20190508
  6. PREDNISOLONE. [Concomitant]
     Active Substance: PREDNISOLONE
     Dosage: FOR 7 DAYS, 6DOSAGE FORMS
     Dates: start: 20200211, end: 20200212
  7. NEXPLANON [Concomitant]
     Active Substance: ETONOGESTREL
     Dosage: USE AS DIRECTED
     Dates: start: 20200127, end: 20200128
  8. CASSIA [Concomitant]
     Dosage: 2 DOSAGE FORMS DAILY; NIGHT
     Dates: start: 20190508
  9. OMEPRAZOLE. [Concomitant]
     Active Substance: OMEPRAZOLE
     Dosage: ON EMPTY STOMACH, 2 DOSAGE FORMS
     Dates: start: 20190508
  10. SALBUTAMOL [Concomitant]
     Active Substance: ALBUTEROL
     Dosage: AS NECESSARY, 2 DOSAGE FORMS
     Route: 055
     Dates: start: 20190508
  11. KETOCONAZOLE. [Concomitant]
     Active Substance: KETOCONAZOLE
     Dosage: USE AS DIRECTED
     Dates: start: 20200211
  12. DOXYCYCLINE. [Concomitant]
     Active Substance: DOXYCYCLINE
     Dosage: ACUTE EXACERBATION OF COPD - ALTERNATIVE OPTION...
     Dates: start: 20200211
  13. BENZOYL PEROXIDE. [Concomitant]
     Active Substance: BENZOYL PEROXIDE
     Dosage: 1 DOSAGE FORMS DAILY; APPLY AT NIGHT
     Dates: start: 20200211, end: 20200212
  14. MACROGOL [Concomitant]
     Active Substance: POLYETHYLENE GLYCOLS
     Dosage: 2-4 SACHETS DAILY CAN USE 8 PER DAY FOR SEVER I...
     Dates: start: 20190508
  15. MIRTAZAPINE. [Concomitant]
     Active Substance: MIRTAZAPINE
     Dosage: USE AS DIRECTED
     Dates: start: 20191125
  16. THIAMINE. [Concomitant]
     Active Substance: THIAMINE
     Dosage: 3 DOSAGE FORMS
     Dates: start: 20191125
  17. SPIRIVA [Concomitant]
     Active Substance: TIOTROPIUM BROMIDE MONOHYDRATE
     Dosage: PUFFS, 2 DOSAGE FORMS
     Dates: start: 20190508

REACTIONS (1)
  - Dystonia [Recovered/Resolved]

NARRATIVE: CASE EVENT DATE: 20200214
